FAERS Safety Report 5823094-5 (Version None)
Quarter: 2008Q3

REPORT INFORMATION
  Report Type: 
  Country: None (occurrence: None)
  Receive Date: 20080725
  Receipt Date: 20070808
  Transmission Date: 20090109
  Serious: No
  Sender: FDA-Public Use
  Company Number: US-AMGEN-KDL238224

PATIENT
  Sex: Female
  Weight: 66.3 kg

DRUGS (10)
  1. PROCRIT [Suspect]
     Indication: RENAL FAILURE CHRONIC
     Route: 058
     Dates: start: 20060101
  2. DIAZEPAM [Concomitant]
  3. FUROSEMIDE [Concomitant]
  4. TOPROL-XL [Concomitant]
  5. POTASSIUM CHLORIDE [Concomitant]
  6. AVALIDE [Concomitant]
  7. ZEMPLAR [Concomitant]
  8. CARTIA XT [Concomitant]
  9. LANTUS [Concomitant]
  10. HUMALOG [Concomitant]

REACTIONS (2)
  - DYSGEUSIA [None]
  - INJECTION SITE IRRITATION [None]
